FAERS Safety Report 12313537 (Version 1)
Quarter: 2016Q2

REPORT INFORMATION
  Report Type: Spontaneous
  Country: US (occurrence: None)
  Receive Date: 20160427
  Receipt Date: 20160427
  Transmission Date: 20160815
  Serious: Yes (Hospitalization)
  Sender: FDA-Public Use
  Company Number: None

PATIENT
  Age: 55 Year
  Sex: Female
  Weight: 55.65 kg

DRUGS (21)
  1. NEXIUM [Concomitant]
     Active Substance: ESOMEPRAZOLE MAGNESIUM
  2. LEVETIRACETAM. [Concomitant]
     Active Substance: LEVETIRACETAM
  3. ATENOLOL. [Concomitant]
     Active Substance: ATENOLOL
  4. PREVACID [Concomitant]
     Active Substance: LANSOPRAZOLE
  5. CIPRO [Concomitant]
     Active Substance: CIPROFLOXACIN HYDROCHLORIDE
  6. ACETAMINOPHEN\HYDROCODONE BITARTRATE [Concomitant]
     Active Substance: ACETAMINOPHEN\HYDROCODONE BITARTRATE
  7. HYDROXYZINE [Concomitant]
     Active Substance: HYDROXYZINE\HYDROXYZINE HYDROCHLORIDE
  8. DACLASTIVIR 60 MG BRISTOL-MYERS SQUIBB [Suspect]
     Active Substance: DACLATASVIR
     Indication: CHRONIC HEPATITIS C
     Route: 048
     Dates: start: 20150929, end: 20160315
  9. LISINOPRIL. [Concomitant]
     Active Substance: LISINOPRIL
  10. SOFESBUVIR 400 GILEAD [Suspect]
     Active Substance: SOFOSBUVIR
     Indication: CHRONIC HEPATITIS C
     Route: 048
     Dates: start: 20150929, end: 20160315
  11. DOCUSATE [Concomitant]
     Active Substance: DOCUSATE
  12. ADVAIR HFA [Concomitant]
     Active Substance: FLUTICASONE PROPIONATE\SALMETEROL XINAFOATE
  13. TRAMADOL. [Concomitant]
     Active Substance: TRAMADOL
  14. PROAIR HFA [Concomitant]
     Active Substance: ALBUTEROL SULFATE
  15. COMBIVENT [Concomitant]
     Active Substance: ALBUTEROL SULFATE\IPRATROPIUM BROMIDE
  16. MONTELUKAST [Concomitant]
     Active Substance: MONTELUKAST SODIUM
  17. ONDANSETRON [Concomitant]
     Active Substance: ONDANSETRON
  18. FLAGYL [Concomitant]
     Active Substance: METRONIDAZOLE\METRONIDAZOLE HYDROCHLORIDE
  19. ZALEPLON. [Concomitant]
     Active Substance: ZALEPLON
  20. QUETIAPINE. [Concomitant]
     Active Substance: QUETIAPINE
  21. GABAPENTIN. [Concomitant]
     Active Substance: GABAPENTIN

REACTIONS (11)
  - Hypotension [None]
  - Vomiting [None]
  - Diarrhoea [None]
  - Leukocytosis [None]
  - Tenderness [None]
  - Nausea [None]
  - Abdominal pain [None]
  - Acute kidney injury [None]
  - Dysuria [None]
  - Flank pain [None]
  - Suprapubic pain [None]

NARRATIVE: CASE EVENT DATE: 20151122
